FAERS Safety Report 8270568-6 (Version None)
Quarter: 2012Q2

REPORT INFORMATION
  Report Type: 
  Country: None (occurrence: None)
  Receive Date: 20120410
  Receipt Date: 20120402
  Transmission Date: 20120825
  Serious: Yes (Hospitalization, Other)
  Sender: FDA-Public Use
  Company Number: IT-BRISTOL-MYERS SQUIBB COMPANY-16497943

PATIENT
  Age: 82 Year
  Sex: Male

DRUGS (5)
  1. EFFEXOR [Concomitant]
  2. ENOXAPARIN SODIUM [Suspect]
     Dosage: CLEXANE T (6000 IU AXA/0,6 ML SOLUTION FOR SUBCUTANEOUS USE) 2 DOSAGE UNIT
     Route: 058
     Dates: start: 20120309, end: 20120316
  3. LANOXIN [Concomitant]
  4. COUMADIN [Suspect]
     Dosage: COUMADIN(5MG TABLET ORAL USE) 1 DOSAGE UNIT/AS NECESSARY
     Route: 048
     Dates: start: 20120116, end: 20120316
  5. CANDESARTAN CILEXETIL AND HYDROCHLOROTHIAZIDE [Concomitant]

REACTIONS (2)
  - FALL [None]
  - SUBDURAL HAEMATOMA [None]
